FAERS Safety Report 23575218 (Version 1)
Quarter: 2024Q1

REPORT INFORMATION
  Report Type: Spontaneous
  Country: ES (occurrence: ES)
  Receive Date: 20240228
  Receipt Date: 20240228
  Transmission Date: 20240410
  Serious: Yes (Hospitalization)
  Sender: FDA-Public Use
  Company Number: None

PATIENT
  Age: 48 Year
  Sex: Female

DRUGS (16)
  1. CAPECITABINE [Suspect]
     Active Substance: CAPECITABINE
     Indication: Breast neoplasm
     Dosage: C2D1
     Route: 048
     Dates: start: 20230629, end: 20230827
  2. CAPECITABINE [Suspect]
     Active Substance: CAPECITABINE
     Indication: Breast neoplasm
     Dosage: 07/20/23 BEGINS A NEW CYCLE OF 14 DAYS WITH A WEEK OFF.
     Route: 048
     Dates: start: 20230720
  3. CAPECITABINE [Suspect]
     Active Substance: CAPECITABINE
     Indication: Breast neoplasm
     Dosage: CAPECITABINE REDUCED DOSE
     Route: 048
     Dates: start: 20230914
  4. CAPECITABINE [Suspect]
     Active Substance: CAPECITABINE
     Indication: Breast neoplasm
     Dosage: 1W ON /1W OFF CONTINUES. INCREASES TO 1150/12H
     Route: 048
     Dates: start: 20231027
  5. Venlafaxine retard alter [Concomitant]
     Dosage: 30 CAPSULES RELEASE PROLONGAD EFG - 1 CAPSULE - 24 HOURS?DAILY DOSE: 1 DOSAGE FORM
  6. Lisinopril Stada [Concomitant]
     Dosage: 28 TABLETS EFG - 1 TABLET - 24 HOURS?DAILY DOSE: 1 DOSAGE FORM
  7. OXYCONTIN [Concomitant]
     Active Substance: OXYCODONE HYDROCHLORIDE
     Dosage: (OXYCONTIN 40MG)28 MODIFIED RELEASE TABLETS - 1 TABLET - 12 HOURS?DAILY DOSE: 2 DOSAGE FORM
  8. OXYCONTIN [Concomitant]
     Active Substance: OXYCODONE HYDROCHLORIDE
     Dosage: (OXYCONTIN 20MG)28 MODIFIED RELEASE TABLETS - 1 TABLET - 12 HOURS?DAILY DOSE: 2 DOSAGE FORM
  9. OXYCONTIN [Concomitant]
     Active Substance: OXYCODONE HYDROCHLORIDE
     Dosage: (OXYCONTIN 10MG)28 MODIFIED RELEASE TABLETS - 1 TABLET - 12 HOURS?DAILY DOSE: 4 DOSAGE FORM
  10. LYRICA [Concomitant]
     Active Substance: PREGABALIN
     Dosage: 56 HARD CAPSULES - 1 CAPSULE - 24 HOURS(LYRICA 75MG)?DAILY DOSE: 1 DOSAGE FORM
  11. LYRICA [Concomitant]
     Active Substance: PREGABALIN
     Dosage: LYRICA 150MG 56 HARD CAPSULES - 1 CAPSULE - 12 HOURS(LYRICA 150MG)?DAILY DOSE: 2 DOSAGE FORM
  12. ABSTRAL [Concomitant]
     Active Substance: FENTANYL CITRATE
     Dosage: 30 SUBLINGUAL TABLETS - 1 TABLET - 4 HOURS?DAILY DOSE: 6 DOSAGE FORM
  13. Kaptic [Concomitant]
     Dosage: 30 TABLETS SUBLINGUAL EFG - 1 TABLET - 4 HOURS?DAILY DOSE: 6 DOSAGE FORM
  14. DEXKETOPROFEN TROMETAMOL [Concomitant]
     Active Substance: DEXKETOPROFEN TROMETAMOL
     Dosage: 20 COMPR RECUB - 1 TABLET - 8 HOURS?DAILY DOSE: 3 DOSAGE FORM
  15. Famotidine Cinfa [Concomitant]
     Dosage: 20 COMP RECUB EFG - 1 TABLET - 24 HOURS?DAILY DOSE: 1 DOSAGE FORM
  16. PRIMPERAN [Concomitant]
     Active Substance: METOCLOPRAMIDE HYDROCHLORIDE
     Dosage: 30 TABLETS - 1 TABLET - 8 HOURS?DAILY DOSE: 3 DOSAGE FORM

REACTIONS (3)
  - Terminal ileitis [Recovered/Resolved]
  - Gastroenteritis bacillus [Recovered/Resolved]
  - Leukopenia [Unknown]

NARRATIVE: CASE EVENT DATE: 20230824
